FAERS Safety Report 6081762-7 (Version None)
Quarter: 2009Q1

REPORT INFORMATION
  Report Type: 
  Country: None (occurrence: None)
  Receive Date: 20090128
  Receipt Date: 20080211
  Transmission Date: 20090719
  Serious: Yes (Other)
  Sender: FDA-Public Use
  Company Number: THYR-1000017

PATIENT
  Age: 50 Year
  Sex: Female
  Weight: 87.1 kg

DRUGS (4)
  1. THYROGEN [Suspect]
     Indication: DIAGNOSTIC PROCEDURE
     Dosage: 0.9 MG, QD, INTRAMUSCULAR
     Route: 030
     Dates: start: 20080211, end: 20080211
  2. VITAMIN D [Concomitant]
  3. CALCIUM (CALCIUM) [Concomitant]
  4. SYNTHROID [Concomitant]

REACTIONS (3)
  - CHEST DISCOMFORT [None]
  - THROAT TIGHTNESS [None]
  - WHEEZING [None]
